FAERS Safety Report 20943159 (Version 1)
Quarter: 2022Q2

REPORT INFORMATION
  Report Type: Other
  Country: US (occurrence: None)
  Receive Date: 20220610
  Receipt Date: 20220610
  Transmission Date: 20220721
  Serious: Yes (Other)
  Sender: FDA-Public Use
  Company Number: US-ROCHE-3108228

PATIENT
  Sex: Female
  Weight: 91.708 kg

DRUGS (13)
  1. OCREVUS [Suspect]
     Active Substance: OCRELIZUMAB
     Indication: Multiple sclerosis
     Dosage: 30 MG/1ML INTRAVENOUS SOLUTION
     Route: 042
     Dates: start: 20160221
  2. AMITRIPTYLINE [Concomitant]
     Active Substance: AMITRIPTYLINE
     Indication: Product use in unapproved indication
     Route: 048
  3. RIZATRIPTAN [Concomitant]
     Active Substance: RIZATRIPTAN
  4. IBUPROFEN [Concomitant]
     Active Substance: IBUPROFEN
  5. DIPHENHYDRAMINE [Concomitant]
     Active Substance: DIPHENHYDRAMINE
  6. ACETAMINOPHEN [Concomitant]
     Active Substance: ACETAMINOPHEN
  7. SOLU-MEDROL [Concomitant]
     Active Substance: METHYLPREDNISOLONE SODIUM SUCCINATE
  8. ONDANSETRON [Concomitant]
     Active Substance: ONDANSETRON
  9. CETIRIZINE HYDROCHLORIDE [Concomitant]
     Active Substance: CETIRIZINE HYDROCHLORIDE
  10. DEXAMETHASONE [Concomitant]
     Active Substance: DEXAMETHASONE
  11. LEVOTHYROXINE [Concomitant]
     Active Substance: LEVOTHYROXINE
  12. OXYBUTYNIN CHLORIDE [Concomitant]
     Active Substance: OXYBUTYNIN CHLORIDE
  13. MODAFINIL [Concomitant]
     Active Substance: MODAFINIL

REACTIONS (19)
  - Migraine [Unknown]
  - Hyperreflexia [Unknown]
  - Vestibular disorder [Unknown]
  - Joint ankylosis [Unknown]
  - Vestibular function test abnormal [Unknown]
  - Multiple sclerosis [Unknown]
  - Eye pain [Unknown]
  - Neuritis [Unknown]
  - Fall [Unknown]
  - COVID-19 [Unknown]
  - Pain in extremity [Unknown]
  - Paraesthesia [Unknown]
  - Snoring [Unknown]
  - Palpitations [Unknown]
  - Somnolence [Unknown]
  - Thyroid disorder [Unknown]
  - Pain in extremity [Unknown]
  - Anxiety [Unknown]
  - Depression [Unknown]
